FAERS Safety Report 8805986 (Version 3)
Quarter: 2012Q4

REPORT INFORMATION
  Report Type: Spontaneous
  Country: JP (occurrence: None)
  Receive Date: 20120918
  Receipt Date: 20121211
  Transmission Date: 20130627
  Serious: Yes (Other)
  Sender: FDA-Public Use
  Company Number: 2010JP000467

PATIENT
  Age: 30 Year
  Sex: Female
  Weight: 50.6 kg

DRUGS (24)
  1. TACROLIMUS [Suspect]
     Indication: LUPUS NEPHRITIS
     Route: 048
     Dates: start: 20080813
  2. PREDNISOLONE [Suspect]
     Indication: LUPUS NEPHRITIS
     Route: 048
  3. PREDNISOLONE [Suspect]
     Indication: LUPUS NEPHRITIS
     Route: 048
     Dates: start: 20080813, end: 20080819
  4. PREDNISOLONE [Suspect]
     Indication: LUPUS NEPHRITIS
     Route: 048
     Dates: start: 20080820, end: 20080826
  5. PREDNISOLONE [Suspect]
     Indication: LUPUS NEPHRITIS
     Route: 048
     Dates: start: 20080827, end: 20080901
  6. PREDNISOLONE [Suspect]
     Indication: LUPUS NEPHRITIS
     Route: 048
     Dates: start: 20080902, end: 20080909
  7. PREDNISOLONE [Suspect]
     Indication: LUPUS NEPHRITIS
     Route: 048
     Dates: start: 20080910, end: 20080930
  8. PREDNISOLONE [Suspect]
     Indication: LUPUS NEPHRITIS
     Route: 048
     Dates: start: 20081001, end: 20081014
  9. PREDNISOLONE [Suspect]
     Indication: LUPUS NEPHRITIS
     Route: 048
     Dates: start: 20081015, end: 20081111
  10. PREDNISOLONE [Suspect]
     Indication: LUPUS NEPHRITIS
     Route: 048
     Dates: start: 20081112, end: 20090203
  11. PREDNISOLONE [Suspect]
     Indication: LUPUS NEPHRITIS
     Route: 048
     Dates: start: 20090204, end: 20090401
  12. PREDNISOLONE [Suspect]
     Indication: LUPUS NEPHRITIS
     Route: 048
     Dates: start: 20090402, end: 20100106
  13. PREDNISOLONE [Suspect]
     Indication: LUPUS NEPHRITIS
     Route: 048
     Dates: start: 20100107, end: 20100427
  14. PREDNISOLONE [Suspect]
     Indication: LUPUS NEPHRITIS
     Route: 048
     Dates: start: 20100428, end: 20100817
  15. PREDNISOLONE [Suspect]
     Indication: LUPUS NEPHRITIS
     Route: 048
     Dates: start: 20100818, end: 20101208
  16. PREDNISOLONE [Suspect]
     Indication: LUPUS NEPHRITIS
     Route: 048
     Dates: start: 20101209
  17. BAYASPIRIN (ACETYLSALICYLIC ACID) [Concomitant]
  18. SELARA (EPLERENONE) [Concomitant]
  19. PARIET (RABEPRAZOLE SODIUM) [Concomitant]
  20. WARFARIN [Concomitant]
  21. MUCOSTA (REBAMIPIDE) [Concomitant]
  22. NU-LOTAN (LOSARTAN POTASSIUM) [Concomitant]
  23. BENET (RISEDRONATE SODIUM) [Concomitant]
  24. ZETIA (EZETIMIBE) [Concomitant]

REACTIONS (3)
  - Herpes zoster [None]
  - Microcytic anaemia [None]
  - Infection [None]
